FAERS Safety Report 6752701-8 (Version None)
Quarter: 2010Q2

REPORT INFORMATION
  Report Type: 
  Country: None (occurrence: None)
  Receive Date: 20100528
  Receipt Date: 20100526
  Transmission Date: 20101027
  Serious: Yes (Other)
  Sender: FDA-Public Use
  Company Number: 20108693

PATIENT
  Sex: Male

DRUGS (1)
  1. LIORESAL [Suspect]
     Indication: MUSCLE SPASTICITY
     Dosage: LESS THAN 200 MCG, DAILY, INTRATHECAL
     Route: 037

REACTIONS (4)
  - BLOOD CREATINE PHOSPHOKINASE INCREASED [None]
  - COMPLICATION OF DEVICE INSERTION [None]
  - MUSCLE SPASTICITY [None]
  - WITHDRAWAL SYNDROME [None]
